FAERS Safety Report 9251031 (Version 1)
Quarter: 2013Q2

REPORT INFORMATION
  Report Type: Spontaneous
  Country: ES (occurrence: ES)
  Receive Date: 20130424
  Receipt Date: 20130424
  Transmission Date: 20140414
  Serious: Yes (Death)
  Sender: FDA-Public Use
  Company Number: ES-SANOFI-AVENTIS-2013SA039281

PATIENT
  Age: 77 Year
  Sex: Male

DRUGS (6)
  1. SEGURIL [Suspect]
     Indication: CARDIAC FAILURE
     Route: 048
     Dates: start: 20090507, end: 20091119
  2. ESPIRONOLACTONA [Interacting]
     Indication: CARDIAC FAILURE
     Route: 048
     Dates: start: 20091007, end: 20091119
  3. ESPIRONOLACTONA [Interacting]
     Indication: CARDIAC FAILURE
     Route: 048
     Dates: start: 20090924, end: 20091006
  4. DULOXETINE HYDROCHLORIDE [Interacting]
     Indication: PRODUCT USED FOR UNKNOWN INDICATION
     Route: 048
     Dates: start: 20090924, end: 20091006
  5. DULOXETINE HYDROCHLORIDE [Interacting]
     Indication: PRODUCT USED FOR UNKNOWN INDICATION
     Route: 048
     Dates: start: 20091030, end: 20091119
  6. SEPTRIN FORTE [Concomitant]
     Dosage: SEPTRIN FORTE 160 MG/800 MG COMPRIMIDOS, 20 COMPRIMIDOS
     Route: 048
     Dates: start: 20091008, end: 20091125

REACTIONS (4)
  - Renal failure acute [Fatal]
  - Drug interaction [Fatal]
  - Hyperkalaemia [Fatal]
  - Hyponatraemia [Fatal]
